FAERS Safety Report 5199950-0 (Version None)
Quarter: 2007Q1

REPORT INFORMATION
  Report Type: 
  Country: None (occurrence: None)
  Receive Date: 20070103
  Receipt Date: 20061219
  Transmission Date: 20070707
  Serious: Yes (Hospitalization)
  Sender: FDA-Public Use
  Company Number: 2006BI016652

PATIENT
  Age: 57 Year
  Sex: Female

DRUGS (8)
  1. AVONEX [Suspect]
     Indication: MULTIPLE SCLEROSIS
     Dosage: 30 UG;QW;IM
     Route: 030
  2. AVONEX [Suspect]
     Indication: MULTIPLE SCLEROSIS
     Dosage: 30 UG;QW;IM
     Route: 030
     Dates: start: 20060501
  3. NAPROSYN [Concomitant]
  4. PROVIGIL [Concomitant]
  5. LEVOXYL [Concomitant]
  6. PREVACID [Concomitant]
  7. VICODIN [Concomitant]
  8. NEURONTIN [Concomitant]

REACTIONS (2)
  - BLOOD TEST ABNORMAL [None]
  - GASTRIC ULCER HAEMORRHAGE [None]
